FAERS Safety Report 9204167 (Version 5)
Quarter: 2013Q2

REPORT INFORMATION
  Report Type: Spontaneous
  Country: FR (occurrence: FR)
  Receive Date: 20130402
  Receipt Date: 20130510
  Transmission Date: 20140414
  Serious: Yes (Hospitalization, Other)
  Sender: FDA-Public Use
  Company Number: FR-TEVA-395484ISR

PATIENT
  Age: 26 Year
  Sex: Male
  Weight: 62 kg

DRUGS (3)
  1. COPAXONE [Suspect]
     Indication: MULTIPLE SCLEROSIS
     Dosage: 1 DOSAGE FORMS DAILY;
     Route: 058
     Dates: start: 20130318
  2. NEURONTIN [Concomitant]
     Indication: PARAESTHESIA
     Dosage: 1500 MILLIGRAM DAILY; 1 TABLET OF 600 MG AND 1 TABLET OF 900 MG
     Dates: start: 20130318
  3. DOLIPRANE [Concomitant]
     Indication: PAIN
     Dosage: ONE TABLET TWICE OR THREE TIMES A DAY IF NEEDED
     Route: 048

REACTIONS (12)
  - Gastroenteritis [Recovering/Resolving]
  - Rectal haemorrhage [Recovered/Resolved]
  - Diarrhoea [Recovering/Resolving]
  - Diarrhoea [Recovered/Resolved]
  - Muscle spasms [Recovered/Resolved]
  - Abdominal discomfort [Unknown]
  - Abdominal pain [Unknown]
  - Constipation [Recovered/Resolved]
  - Injection site pain [Unknown]
  - Injection site pain [Unknown]
  - Injection site reaction [Unknown]
  - Fatigue [Not Recovered/Not Resolved]
